FAERS Safety Report 15334211 (Version 1)
Quarter: 2018Q3

REPORT INFORMATION
  Report Type: Spontaneous
  Country: US (occurrence: US)
  Receive Date: 20180827
  Receipt Date: 20180827
  Transmission Date: 20181010
  Serious: Yes (Hospitalization)
  Sender: FDA-Public Use
  Company Number: None

PATIENT
  Age: 61 Year
  Sex: Female

DRUGS (17)
  1. ASPIRIN. [Concomitant]
     Active Substance: ASPIRIN
  2. ATORVASTATIN [Concomitant]
     Active Substance: ATORVASTATIN
  3. INVOKANA [Concomitant]
     Active Substance: CANAGLIFLOZIN
  4. NAPROXEN. [Concomitant]
     Active Substance: NAPROXEN
  5. VIT B 12 [Concomitant]
  6. BUMETANIDINE [Concomitant]
  7. LASARTAN POT [Concomitant]
  8. PIOGLITAZONE. [Concomitant]
     Active Substance: PIOGLITAZONE
  9. DIAZEPAM. [Concomitant]
     Active Substance: DIAZEPAM
  10. VITAMIN D3 [Concomitant]
     Active Substance: CHOLECALCIFEROL
  11. PROLIA [Concomitant]
     Active Substance: DENOSUMAB
  12. VITAMIN E [Concomitant]
     Active Substance: .ALPHA.-TOCOPHEROL
  13. WELCHOL [Concomitant]
     Active Substance: COLESEVELAM HYDROCHLORIDE
  14. CARVEDILOL. [Concomitant]
     Active Substance: CARVEDILOL
  15. FISH OIL [Concomitant]
     Active Substance: FISH OIL
  16. GLIPIZIDE. [Concomitant]
     Active Substance: GLIPIZIDE
  17. IBRANCE [Suspect]
     Active Substance: PALBOCICLIB
     Indication: NEUROENDOCRINE TUMOUR
     Dosage: ?          OTHER FREQUENCY:QD FOR 21/28 DAYS;?
     Route: 048
     Dates: start: 20161129

REACTIONS (1)
  - Hospitalisation [None]

NARRATIVE: CASE EVENT DATE: 20180824
